FAERS Safety Report 6822621-9 (Version None)
Quarter: 2010Q3

REPORT INFORMATION
  Report Type: 
  Country: None (occurrence: None)
  Receive Date: 20100706
  Receipt Date: 20100706
  Transmission Date: 20110219
  Serious: No
  Sender: FDA-Public Use
  Company Number: None

PATIENT
  Age: 31 Year
  Sex: Female
  Weight: 77.1115 kg

DRUGS (6)
  1. ZYRTEC [Suspect]
     Indication: RHINITIS ALLERGIC
     Dosage: ZYRTEC ONCE DAILY PO
     Route: 048
     Dates: start: 20060821, end: 20100628
  2. SINGULAIR [Concomitant]
  3. ADVAIR DISKUS 100/50 [Concomitant]
  4. NASONEX [Concomitant]
  5. MUCONEX [Concomitant]
  6. SUDAFED 12 HOUR [Concomitant]

REACTIONS (8)
  - ANXIETY [None]
  - CHRONIC SINUSITIS [None]
  - DISCOMFORT [None]
  - DIZZINESS [None]
  - INSOMNIA [None]
  - PRURITUS GENERALISED [None]
  - TREMOR [None]
  - URINE OUTPUT INCREASED [None]
